FAERS Safety Report 7879651-8 (Version None)
Quarter: 2011Q4

REPORT INFORMATION
  Report Type: 
  Country: None (occurrence: None)
  Receive Date: 20111101
  Receipt Date: 20111019
  Transmission Date: 20120403
  Serious: Yes (Hospitalization)
  Sender: FDA-Public Use
  Company Number: US-GLAXOSMITHKLINE-B0696902A

PATIENT
  Age: 57 Year
  Sex: Male

DRUGS (5)
  1. NEXIUM [Concomitant]
  2. HYDROCHLOROTHIAZIDE [Concomitant]
     Dates: end: 20040801
  3. AVANDIA [Suspect]
     Indication: DIABETES MELLITUS
     Dosage: 2MG PER DAY
     Route: 048
     Dates: start: 20020601, end: 20040101
  4. CELEBREX [Concomitant]
  5. ENALAPRIL [Concomitant]
     Dates: end: 20040801

REACTIONS (3)
  - TRANSIENT ISCHAEMIC ATTACK [None]
  - CORONARY ARTERY BYPASS [None]
  - CORONARY ARTERY DISEASE [None]
